FAERS Safety Report 5235908-0 (Version None)
Quarter: 2007Q1

REPORT INFORMATION
  Report Type: 
  Country: None (occurrence: None)
  Receive Date: 20061208
  Receipt Date: 20060601
  Transmission Date: 20070707
  Serious: Yes (Other)
  Sender: FDA-Public Use
  Company Number: 2006UW07443

PATIENT
  Age: 54 Year
  Sex: Female
  Weight: 75.2971 kg

DRUGS (8)
  1. CRESTOR [Suspect]
     Indication: BLOOD CHOLESTEROL INCREASED
     Dosage: 10 MG DAILY PO
     Route: 048
     Dates: start: 20060401
  2. SYNTHROID [Concomitant]
  3. POTASSIUM ACETATE [Concomitant]
  4. XANAX [Concomitant]
  5. ZOLOFT [Concomitant]
  6. TOPAMAX [Concomitant]
  7. TOPROL-XL [Concomitant]
  8. ACIPHEX [Concomitant]

REACTIONS (4)
  - ARTHRALGIA [None]
  - FEELING ABNORMAL [None]
  - JOINT SWELLING [None]
  - RASH [None]
